FAERS Safety Report 8789394 (Version 1)
Quarter: 2012Q4

REPORT INFORMATION
  Report Type: Spontaneous
  Country: US (occurrence: None)
  Receive Date: 20120904
  Receipt Date: 20120904
  Transmission Date: 20130627
  Serious: Yes (Hospitalization)
  Sender: FDA-Public Use
  Company Number: DSU-2012-06935

PATIENT
  Age: 73 Year
  Sex: Male
  Weight: 66.23 kg

DRUGS (3)
  1. TRIBENZOR [Suspect]
     Indication: HYPERTENSION
     Route: 048
     Dates: start: 2011, end: 20120524
  2. ALLOPURINOL [Concomitant]
  3. STATIN (INGREDIENTS UNKNOWN) [Concomitant]

REACTIONS (3)
  - Stent placement [None]
  - Carotid artery thrombosis [None]
  - Catheterisation cardiac [None]
